FAERS Safety Report 8141057-4 (Version None)
Quarter: 2012Q1

REPORT INFORMATION
  Report Type: 
  Country: None (occurrence: None)
  Receive Date: 20120103
  Receipt Date: 20111028
  Transmission Date: 20120608
  Serious: No
  Sender: FDA-Public Use
  Company Number: AE-2011-002287

PATIENT
  Age: 44 Year
  Sex: Female
  Weight: 74.3899 kg

DRUGS (12)
  1. INCIVEK [Suspect]
     Dosage: 4500 MG (750 MG,2 IN 8 HR),ORAL
     Route: 048
     Dates: start: 20110806
  2. DILAUDID [Concomitant]
  3. IMMODIUM D [Concomitant]
  4. RIBAVIRIN [Concomitant]
  5. SINEMET [Concomitant]
  6. PROMETHAZINE [Concomitant]
  7. PEGINTRON (PEGINTERFERON ALFA-2A) [Concomitant]
  8. DEXILANT [Concomitant]
  9. DICYCLOMINE [Concomitant]
  10. SOMA [Concomitant]
  11. VITAMIN D [Concomitant]
  12. ZYRTEC [Concomitant]

REACTIONS (9)
  - INJECTION SITE PAIN [None]
  - VOMITING [None]
  - STOMATITIS [None]
  - INSOMNIA [None]
  - GINGIVAL SWELLING [None]
  - ANORECTAL DISCOMFORT [None]
  - PAIN IN EXTREMITY [None]
  - DIARRHOEA [None]
  - INJECTION SITE ERYTHEMA [None]
